FAERS Safety Report 7378283-8 (Version None)
Quarter: 2011Q1

REPORT INFORMATION
  Report Type: 
  Country: None (occurrence: None)
  Receive Date: 20110328
  Receipt Date: 20110323
  Transmission Date: 20110831
  Serious: Yes (Hospitalization, Other)
  Sender: FDA-Public Use
  Company Number: BR-ABBOTT-11P-020-0714111-00

PATIENT
  Sex: Female
  Weight: 75 kg

DRUGS (5)
  1. FUROSEMIDE [Concomitant]
     Indication: DIURETIC THERAPY
     Route: 048
  2. ATACAND [Concomitant]
     Indication: HYPERTENSION
     Route: 048
  3. HUMIRA [Suspect]
     Indication: RHEUMATOID ARTHRITIS
     Route: 058
     Dates: start: 20100815, end: 20110217
  4. LEFLUNOMIDE [Concomitant]
     Indication: ARTHRITIS
     Route: 048
     Dates: end: 20110301
  5. PREDNISOLONE [Concomitant]
     Indication: ARTHRITIS
     Route: 048

REACTIONS (2)
  - BONE DISORDER [None]
  - INFLAMMATION [None]
